FAERS Safety Report 8342915-8 (Version None)
Quarter: 2012Q2

REPORT INFORMATION
  Report Type: 
  Country: None (occurrence: None)
  Receive Date: 20120508
  Receipt Date: 20120507
  Transmission Date: 20120825
  Serious: No
  Sender: FDA-Public Use
  Company Number: US-PFIZER INC-2012110846

PATIENT
  Sex: Female
  Weight: 62.585 kg

DRUGS (7)
  1. TRAMADOL [Concomitant]
     Indication: INTERVERTEBRAL DISC DEGENERATION
     Dosage: 100 MG, 3X/DAY
  2. PREMARIN [Suspect]
     Indication: POSTMENOPAUSE
     Dosage: 0.5 MG, 2X/WEEK
     Route: 067
     Dates: start: 20120101, end: 20120507
  3. LISINOPRIL [Concomitant]
     Indication: HYPERTENSION
     Dosage: 40 MG,DAILY
  4. LORTAB [Concomitant]
     Indication: INTERVERTEBRAL DISC DEGENERATION
     Dosage: 10/500 MG, 3X/DAY
  5. NEURONTIN [Concomitant]
     Indication: INTERVERTEBRAL DISC DEGENERATION
     Dosage: 300 MG, 3X/DAY
  6. PRAVASTATIN SODIUM [Concomitant]
     Indication: BLOOD CHOLESTEROL INCREASED
     Dosage: 20 MG,DAILY
  7. PREDNISONE [Concomitant]
     Indication: BACK DISORDER
     Dosage: 10 MG, 3X/DAY

REACTIONS (3)
  - NAUSEA [None]
  - DIZZINESS [None]
  - HEADACHE [None]
